FAERS Safety Report 17992824 (Version 1)
Quarter: 2020Q3

REPORT INFORMATION
  Report Type: Spontaneous
  Country: US (occurrence: US)
  Receive Date: 20200707
  Receipt Date: 20200707
  Transmission Date: 20201103
  Serious: Yes (Hospitalization, Disabling, Other)
  Sender: FDA-Public Use
  Company Number: US-NOVOPROD-738245

PATIENT
  Age: 48 Year
  Sex: Female
  Weight: 72.57 kg

DRUGS (3)
  1. NOVOLIN 70/30 [Suspect]
     Active Substance: INSULIN HUMAN
     Dosage: DOUBLE DOSE OF THE INSULIN
     Route: 058
     Dates: start: 1992
  2. NOVOLIN 70/30 [Suspect]
     Active Substance: INSULIN HUMAN
     Indication: DIABETES MELLITUS
     Dosage: 40?50 UNITS A DAY
     Route: 058
     Dates: start: 1992
  3. NOVOLIN 70/30 [Suspect]
     Active Substance: INSULIN HUMAN
     Dosage: 40?50 UNITS A DAY
     Route: 058
     Dates: start: 1992

REACTIONS (6)
  - Blood glucose decreased [Recovered/Resolved]
  - Myocardial infarction [Recovering/Resolving]
  - Chest pain [Unknown]
  - Accidental overdose [Unknown]
  - Transient ischaemic attack [Unknown]
  - Dyspnoea [Unknown]

NARRATIVE: CASE EVENT DATE: 2016
